FAERS Safety Report 13040737 (Version 2)
Quarter: 2017Q1

REPORT INFORMATION
  Report Type: Spontaneous
  Country: JP (occurrence: JP)
  Receive Date: 20161219
  Receipt Date: 20170117
  Transmission Date: 20170428
  Serious: Yes (Other)
  Sender: FDA-Public Use
  Company Number: JP-PFIZER INC-2016578346

PATIENT
  Age: 51 Year
  Sex: Male
  Weight: 72 kg

DRUGS (4)
  1. MECOBALAMIN [Concomitant]
     Active Substance: METHYLCOBALAMIN
     Indication: ABDOMINAL PAIN
  2. LYRICA [Suspect]
     Active Substance: PREGABALIN
     Indication: HYPOAESTHESIA
     Dosage: 150 MG, 2X/DAY
     Route: 048
     Dates: start: 201606
  3. MECOBALAMIN [Concomitant]
     Active Substance: METHYLCOBALAMIN
     Indication: HYPOAESTHESIA
     Dosage: 500 UG, 3X/DAY
     Route: 048
     Dates: start: 201606
  4. LYRICA [Suspect]
     Active Substance: PREGABALIN
     Indication: ABDOMINAL PAIN

REACTIONS (1)
  - Conjunctival haemorrhage [Recovering/Resolving]

NARRATIVE: CASE EVENT DATE: 201611
